FAERS Safety Report 16613815 (Version 1)
Quarter: 2019Q3

REPORT INFORMATION
  Report Type: Report from Study
  Country: DE (occurrence: DE)
  Receive Date: 20190723
  Receipt Date: 20190723
  Transmission Date: 20191004
  Serious: Yes (Hospitalization)
  Sender: FDA-Public Use
  Company Number: DE-ROCHE-2361134

PATIENT
  Age: 33 Year
  Sex: Male

DRUGS (1)
  1. DIAZEPAM. [Suspect]
     Active Substance: DIAZEPAM
     Indication: PRODUCT USED FOR UNKNOWN INDICATION
     Dosage: }0.4 MG/KG/DAY
     Route: 065

REACTIONS (3)
  - Overdose [Unknown]
  - Acquired gene mutation [Unknown]
  - Toxicity to various agents [Unknown]
